FAERS Safety Report 10064978 (Version 2)
Quarter: 2014Q2

REPORT INFORMATION
  Report Type: Report from Study
  Country: JP (occurrence: JP)
  Receive Date: 20140408
  Receipt Date: 20140611
  Transmission Date: 20141212
  Serious: Yes (Death)
  Sender: FDA-Public Use
  Company Number: JP-PFIZER INC-2014093866

PATIENT
  Age: 67 Year
  Sex: Male

DRUGS (6)
  1. ESTRACYT [Suspect]
     Indication: PROSTATE CANCER
     Dosage: 156.7 MG, DAILY
     Route: 048
     Dates: start: 20110525, end: 20110609
  2. OXYCONTIN [Concomitant]
     Dosage: UNK
     Dates: start: 20110525, end: 20110608
  3. RINDERON [Concomitant]
     Dosage: UNK
     Dates: start: 20110609
  4. LEUPLIN SR [Concomitant]
     Dosage: UNK
     Dates: start: 20101015
  5. OPSO [Concomitant]
     Dosage: UNK
     Dates: start: 20110525
  6. DUROTEP [Concomitant]
     Dosage: UNK
     Dates: start: 20110609

REACTIONS (1)
  - Renal impairment [Fatal]
